FAERS Safety Report 18376681 (Version 1)
Quarter: 2020Q4

REPORT INFORMATION
  Report Type: Spontaneous
  Country: US (occurrence: US)
  Receive Date: 20201012
  Receipt Date: 20201012
  Transmission Date: 20210114
  Serious: Yes (Death)
  Sender: FDA-Public Use
  Company Number: None

PATIENT
  Sex: Female
  Weight: 88.45 kg

DRUGS (20)
  1. PREDNISONE. [Concomitant]
     Active Substance: PREDNISONE
  2. XGEVA [Concomitant]
     Active Substance: DENOSUMAB
  3. CALCIUM 600 [Concomitant]
     Active Substance: CALCIUM
  4. CYCLOBENZAPRINE HCL [Concomitant]
     Active Substance: CYCLOBENZAPRINE HYDROCHLORIDE
  5. FASLODEX [Concomitant]
     Active Substance: FULVESTRANT
  6. XARELTO [Concomitant]
     Active Substance: RIVAROXABAN
  7. TYLENOL [Concomitant]
     Active Substance: ACETAMINOPHEN
  8. AVAPRO [Concomitant]
     Active Substance: IRBESARTAN
  9. BUPROPION HCL ER (XL) [Concomitant]
     Active Substance: BUPROPION HYDROCHLORIDE
  10. FENTANYL. [Concomitant]
     Active Substance: FENTANYL
  11. FOLIC ACID. [Concomitant]
     Active Substance: FOLIC ACID
  12. GABAPENTIN. [Concomitant]
     Active Substance: GABAPENTIN
  13. CEPHALEXIN. [Concomitant]
     Active Substance: CEPHALEXIN
  14. CAPECITABINE. [Suspect]
     Active Substance: CAPECITABINE
     Indication: BREAST CANCER
     Route: 048
     Dates: start: 20200620, end: 20201012
  15. SIMVASTATIN. [Concomitant]
     Active Substance: SIMVASTATIN
  16. AMLODIPINE BESYLATE. [Concomitant]
     Active Substance: AMLODIPINE BESYLATE
  17. COLCHICINE. [Concomitant]
     Active Substance: COLCHICINE
  18. DILAUDID [Concomitant]
     Active Substance: HYDROMORPHONE HYDROCHLORIDE
  19. VITAMIN D3 [Concomitant]
     Active Substance: CHOLECALCIFEROL
  20. LORAZEPAM. [Concomitant]
     Active Substance: LORAZEPAM

REACTIONS (1)
  - Death [None]
